FAERS Safety Report 7191526-9 (Version None)
Quarter: 2010Q4

REPORT INFORMATION
  Report Type: 
  Country: None (occurrence: None)
  Receive Date: 20101223
  Receipt Date: 20101203
  Transmission Date: 20110411
  Serious: Yes (Other)
  Sender: FDA-Public Use
  Company Number: US-BAYER-2010-004324

PATIENT
  Sex: Female

DRUGS (3)
  1. YASMIN [Suspect]
     Dosage: UNK
     Dates: start: 20010101, end: 20030101
  2. YASMIN [Suspect]
     Dosage: UNK
     Dates: start: 20030101, end: 20031231
  3. YAZ [Suspect]

REACTIONS (1)
  - GALLBLADDER DISORDER [None]
